FAERS Safety Report 18485355 (Version 1)
Quarter: 2020Q4

REPORT INFORMATION
  Report Type: Spontaneous
  Country: US (occurrence: US)
  Receive Date: 20201109
  Receipt Date: 20201109
  Transmission Date: 20210114
  Serious: Yes (Life-Threatening)
  Sender: FDA-Public Use
  Company Number: None

PATIENT
  Age: 48 Year
  Sex: Female
  Weight: 76.5 kg

DRUGS (2)
  1. ESTROGEN PATCH [Concomitant]
     Active Substance: ESTRADIOL
  2. NATURE-THROID [Suspect]
     Active Substance: THYROID, PORCINE
     Indication: HYPOTHYROIDISM
     Dosage: ?          QUANTITY:1 TABLET(S);?
     Route: 048
     Dates: start: 20160104, end: 20200917

REACTIONS (9)
  - Tachycardia [None]
  - Tremor [None]
  - Depressed level of consciousness [None]
  - Restlessness [None]
  - Alopecia [None]
  - Pyrexia [None]
  - Hyperhidrosis [None]
  - Confusional state [None]
  - Weight decreased [None]

NARRATIVE: CASE EVENT DATE: 20191121
